FAERS Safety Report 5124237-1 (Version None)
Quarter: 2006Q4

REPORT INFORMATION
  Report Type: 
  Country: None (occurrence: None)
  Receive Date: 20061010
  Receipt Date: 20061005
  Transmission Date: 20070319
  Serious: Yes (Death)
  Sender: FDA-Public Use
  Company Number: NL-SANOFI-SYNTHELABO-F01200602087

PATIENT
  Sex: Male

DRUGS (10)
  1. OSCAL [Concomitant]
     Route: 048
  2. EUTHYROX [Concomitant]
     Route: 048
  3. LANOXIN [Concomitant]
     Route: 048
  4. METOPROLOL TARTRATE [Concomitant]
     Route: 048
  5. OXAZEPAM [Concomitant]
     Route: 048
  6. CODEINE PHOSPHATE AND ACETAMINOPHEN [Concomitant]
     Dosage: 500 MG/20 MG 1 TABLET
     Route: 048
  7. CETUXIMAB [Suspect]
     Dosage: UNK
     Route: 041
  8. BEVACIZUMAB [Suspect]
     Route: 041
     Dates: start: 20060901, end: 20060901
  9. CAPECITABINE [Suspect]
     Dosage: DAYS 1-14 (1250 MG/M2 AFTER CYCLE 6) 4600 MG
     Route: 048
     Dates: start: 20060901
  10. OXALIPLATIN [Suspect]
     Indication: COLORECTAL CANCER
     Dosage: UNK

REACTIONS (1)
  - EPILEPSY [None]
